FAERS Safety Report 10040849 (Version 1)
Quarter: 2014Q1

REPORT INFORMATION
  Report Type: Spontaneous
  Country: US (occurrence: US)
  Receive Date: 20140327
  Receipt Date: 20140327
  Transmission Date: 20141002
  Serious: No
  Sender: FDA-Public Use
  Company Number: US-PFIZER INC-2014084585

PATIENT
  Age: 81 Year
  Sex: Female
  Weight: 70.3 kg

DRUGS (4)
  1. LYRICA [Suspect]
     Indication: NEUROPATHY PERIPHERAL
     Dosage: 150 MG, 3X/DAY
     Dates: start: 2005
  2. LYRICA [Suspect]
     Indication: COMPLEX REGIONAL PAIN SYNDROME
  3. LEVODOPA-CARBIDOPA [Concomitant]
     Indication: RESTLESS LEGS SYNDROME
     Dosage: UNK
  4. CLONAZEPAM [Concomitant]
     Indication: RESTLESS LEGS SYNDROME
     Dosage: UNK

REACTIONS (10)
  - Cold sweat [Unknown]
  - Hot flush [Unknown]
  - Nausea [Unknown]
  - Insomnia [Unknown]
  - Back disorder [Unknown]
  - Pruritus [Unknown]
  - Anxiety [Unknown]
  - Decreased appetite [Unknown]
  - Fatigue [Unknown]
  - Balance disorder [Unknown]
